FAERS Safety Report 7987612-3 (Version None)
Quarter: 2011Q4

REPORT INFORMATION
  Report Type: 
  Country: None (occurrence: None)
  Receive Date: 20111216
  Receipt Date: 20110513
  Transmission Date: 20120403
  Serious: No
  Sender: FDA-Public Use
  Company Number: US-BRISTOL-MYERS SQUIBB COMPANY-14029029

PATIENT
  Age: 53 Year
  Sex: Male
  Weight: 102 kg

DRUGS (1)
  1. ABILIFY [Suspect]

REACTIONS (3)
  - WEIGHT INCREASED [None]
  - SLUGGISHNESS [None]
  - BALANCE DISORDER [None]
